FAERS Safety Report 17546753 (Version 1)
Quarter: 2020Q1

REPORT INFORMATION
  Report Type: Spontaneous
  Country: US (occurrence: US)
  Receive Date: 20200316
  Receipt Date: 20200316
  Transmission Date: 20200409
  Serious: Yes (Hospitalization)
  Sender: FDA-Public Use
  Company Number: US-NOVOPROD-717538

PATIENT
  Age: 75 Year
  Sex: Female

DRUGS (2)
  1. NOVOLIN R [Suspect]
     Active Substance: INSULIN HUMAN
     Indication: TYPE 2 DIABETES MELLITUS
     Dosage: 10 IU AM, 6+ IU PM, SLIDING SCALE PRN
     Route: 058
     Dates: start: 2010
  2. NOVOLIN N [Suspect]
     Active Substance: INSULIN HUMAN
     Indication: TYPE 2 DIABETES MELLITUS
     Dosage: 15 IU, BID
     Route: 058
     Dates: start: 2010

REACTIONS (3)
  - Blood glucose decreased [Recovered/Resolved]
  - Myocardial infarction [Recovering/Resolving]
  - Cardiogenic shock [Unknown]

NARRATIVE: CASE EVENT DATE: 20190831
